FAERS Safety Report 8444431-1 (Version None)
Quarter: 2012Q2

REPORT INFORMATION
  Report Type: 
  Country: None (occurrence: None)
  Receive Date: 20120618
  Receipt Date: 20120611
  Transmission Date: 20120825
  Serious: Yes (Hospitalization)
  Sender: FDA-Public Use
  Company Number: FR-SANOFI-AVENTIS-2012SA041289

PATIENT
  Age: 28 Year
  Sex: Male

DRUGS (39)
  1. NEURONTIN [Concomitant]
     Route: 048
     Dates: start: 20120217
  2. GANCICLOVIR SODIUM [Suspect]
     Dosage: ROUTE; INJ
     Dates: start: 20120430, end: 20120507
  3. AUGMENTIN '125' [Concomitant]
     Dates: end: 20120215
  4. RIFADIN [Suspect]
     Dosage: STRENGTH; 600 MG, ROUTE; INJ
     Dates: start: 20120407, end: 20120511
  5. ZYVOX [Concomitant]
     Dates: start: 20120226, end: 20120229
  6. PAROXETINE HCL [Concomitant]
     Route: 048
     Dates: start: 20120313
  7. AMOXICILLIN [Concomitant]
     Dates: start: 20120222, end: 20120224
  8. NEXIUM [Concomitant]
     Route: 048
     Dates: start: 20120216, end: 20120229
  9. BISOPROLOL FUMARATE [Concomitant]
     Route: 048
  10. TEGELINE [Concomitant]
     Dates: start: 20120213, end: 20120218
  11. AMIKACIN [Concomitant]
     Dates: start: 20120218, end: 20120220
  12. TAZOBACTAM [Concomitant]
     Dates: start: 20120218, end: 20120221
  13. VALIUM [Concomitant]
     Dates: start: 20120320, end: 20120327
  14. ATARAX [Concomitant]
     Dates: start: 20120319, end: 20120402
  15. TRAMADOL HCL [Concomitant]
     Dates: start: 20120515
  16. COLIMYCINE [Concomitant]
     Dates: start: 20120317, end: 20120323
  17. SOLU-MEDROL [Suspect]
     Dosage: ROUTE; INJ
     Dates: start: 20120504, end: 20120517
  18. ULTIVA [Concomitant]
     Dates: start: 20120321, end: 20120330
  19. LASIX [Concomitant]
     Dates: start: 20120402, end: 20120427
  20. CANCIDAS [Concomitant]
     Dates: start: 20120415, end: 20120428
  21. OMEPRAZOLE [Concomitant]
     Route: 048
  22. TRAMADOL HCL [Concomitant]
     Dates: start: 20120229, end: 20120306
  23. TRAMADOL HCL [Concomitant]
     Dates: start: 20120412, end: 20120502
  24. INOSITOL AND TAURINE AND LIPIDS NOS AND GLUCOSE AND PROTEINS NOS AND C [Concomitant]
     Route: 048
  25. ALODONT [Concomitant]
     Route: 048
     Dates: start: 20120214
  26. IMIPENEM AND CILASTATIN SODIUM [Concomitant]
     Dates: start: 20120226, end: 20120303
  27. OMEPRAZOLE [Concomitant]
     Dates: start: 20120213, end: 20120215
  28. OMEPRAZOLE [Concomitant]
     Dates: start: 20120512, end: 20120516
  29. LOVENOX [Concomitant]
     Dates: start: 20120213
  30. ATARAX [Concomitant]
     Dates: start: 20120412, end: 20120502
  31. XANAX [Concomitant]
     Route: 048
     Dates: start: 20120310, end: 20120402
  32. MUCOFLUID /FRA/ [Concomitant]
     Route: 048
     Dates: start: 20120512
  33. VANCOCIN HYDROCHLORIDE [Concomitant]
     Dates: start: 20120322, end: 20120330
  34. DIAMOX [Concomitant]
     Dates: start: 20120417, end: 20120425
  35. ATARAX [Concomitant]
     Dates: start: 20120515
  36. COLIMYCINE [Concomitant]
     Dates: start: 20120226, end: 20120309
  37. COLIMYCINE [Concomitant]
     Dates: start: 20120401, end: 20120511
  38. COLIMYCINE [Concomitant]
     Dates: start: 20120518
  39. INOSITOL AND TAURINE AND LIPIDS NOS AND GLUCOSE AND PROTEINS NOS AND C [Concomitant]
     Route: 048

REACTIONS (2)
  - LEUKOPENIA [None]
  - NEUTROPENIA [None]
